FAERS Safety Report 7955618-6 (Version None)
Quarter: 2011Q4

REPORT INFORMATION
  Report Type: 
  Country: None (occurrence: None)
  Receive Date: 20111202
  Receipt Date: 20111123
  Transmission Date: 20120403
  Serious: Yes (Hospitalization)
  Sender: FDA-Public Use
  Company Number: IL-ASTRAZENECA-2011SE71506

PATIENT
  Age: 50 Year
  Sex: Female

DRUGS (1)
  1. SEROQUEL XR [Suspect]
     Indication: DEPRESSION
     Route: 048
     Dates: start: 20111031, end: 20111120

REACTIONS (5)
  - STUPOR [None]
  - CONFUSIONAL STATE [None]
  - HEMIPARESIS [None]
  - SPEECH DISORDER [None]
  - EXTRAPYRAMIDAL DISORDER [None]
